FAERS Safety Report 4853264-4 (Version None)
Quarter: 2005Q4

REPORT INFORMATION
  Report Type: 
  Country: None (occurrence: None)
  Receive Date: 20051214
  Receipt Date: 20051114
  Transmission Date: 20060501
  Serious: Yes (Death, Hospitalization)
  Sender: FDA-Public Use
  Company Number: DE-SANOFI-SYNTHELABO-F04200500167

PATIENT
  Sex: Female
  Weight: 74 kg

DRUGS (3)
  1. ELOXATIN [Suspect]
     Indication: COLORECTAL CANCER
     Route: 041
     Dates: start: 20051025, end: 20051025
  2. XELODA [Suspect]
     Indication: COLORECTAL CANCER
     Route: 048
     Dates: start: 20051025, end: 20051104
  3. BEVACIZUMAB [Concomitant]
     Indication: COLORECTAL CANCER
     Route: 041
     Dates: start: 20051025, end: 20051025

REACTIONS (3)
  - DIARRHOEA [None]
  - ILEUS [None]
  - VOMITING [None]
